FAERS Safety Report 4391971-0 (Version None)
Quarter: 2004Q3

REPORT INFORMATION
  Report Type: 
  Country: None (occurrence: None)
  Receive Date: 20040701
  Receipt Date: 20040610
  Transmission Date: 20050211
  Serious: Yes (Other)
  Sender: FDA-Public Use
  Company Number: USA040668911

PATIENT
  Age: 8 Year
  Sex: Male
  Weight: 23 kg

DRUGS (7)
  1. STRATTERA [Suspect]
     Indication: ATTENTION DEFICIT/HYPERACTIVITY DISORDER
     Dosage: 40 MG DAY
     Dates: start: 20030701, end: 20040522
  2. ALBUTEROL [Concomitant]
  3. CLARITIN [Concomitant]
  4. SINUGULAIR (MONTELUKAST SODIUM) [Concomitant]
  5. FORADIL [Concomitant]
  6. NASACORT [Concomitant]
  7. RITALIN LA [Concomitant]

REACTIONS (8)
  - AGITATION [None]
  - BLOOD PRESSURE DIASTOLIC DECREASED [None]
  - DRUG INEFFECTIVE [None]
  - HEART RATE INCREASED [None]
  - LOSS OF CONSCIOUSNESS [None]
  - PARTIAL SEIZURES WITH SECONDARY GENERALISATION [None]
  - POSTICTAL STATE [None]
  - TONIC CLONIC MOVEMENTS [None]
